FAERS Safety Report 16226676 (Version 1)
Quarter: 2019Q2

REPORT INFORMATION
  Report Type: Spontaneous
  Country: NL (occurrence: NL)
  Receive Date: 20190423
  Receipt Date: 20190423
  Transmission Date: 20190711
  Serious: Yes (Hospitalization)
  Sender: FDA-Public Use
  Company Number: NL-SUN PHARMACEUTICAL INDUSTRIES LTD-2019RR-205953

PATIENT
  Age: 70 Year
  Sex: Male

DRUGS (10)
  1. PANTOPRAZOL [Suspect]
     Active Substance: PANTOPRAZOLE SODIUM
     Indication: DUODENAL ULCER
     Dosage: 40 MILLIGRAM, DAILY
     Route: 050
     Dates: start: 20071201, end: 20190326
  2. ALLOPURINOL TABLET 100MGALLOPURINOL TABLET 100MG [Concomitant]
     Indication: PRODUCT USED FOR UNKNOWN INDICATION
     Dosage: 200 MILLIGRAM, DAILY
     Route: 050
  3. METOPROLOL TABLET MGA 100MG (SUCCINAAT)METOPROLOL TABLET MGA 100MG ... [Concomitant]
     Indication: PRODUCT USED FOR UNKNOWN INDICATION
     Dosage: 50 MILLIGRAM, DAILY
     Route: 050
  4. TIMOLOL OOGDRUPPELS 5MG/ML FL 5MLTIMOLOL OOGDRUPPELS 5MG/ML [Concomitant]
     Indication: PRODUCT USED FOR UNKNOWN INDICATION
     Dosage: 1 GTT, BID
     Route: 050
  5. ALFACALCIDOL CAPSULE 0,25UGALFACALCIDOL CAPSULE 0,25UG [Concomitant]
     Indication: PRODUCT USED FOR UNKNOWN INDICATION
     Dosage: UNK
     Route: 050
  6. FUROSEMIDE TABLET 40MGFUROSEMIDE TABLET 40MG [Concomitant]
     Indication: PRODUCT USED FOR UNKNOWN INDICATION
     Dosage: 40 MILLIGRAM, DAILY
     Route: 050
  7. COLCHICINE TABLET 0,5MGCOLCHICINE TABLET 0,5MG [Concomitant]
     Indication: PRODUCT USED FOR UNKNOWN INDICATION
     Dosage: UNK MILLIGRAM, UNK
     Route: 050
  8. ISOSORBIDEDINITRAAT TABLET SUBLINGUAAL 5MGISOSORBIDEDINITRAAT TABLE... [Concomitant]
     Indication: PRODUCT USED FOR UNKNOWN INDICATION
     Dosage: 5 MILLIGRAM, UNK
     Route: 050
  9. ACETYLSALICYLZUUR TABLET  80MGACETYLSALICYLZUUR TABLET  80MG [Concomitant]
     Indication: PRODUCT USED FOR UNKNOWN INDICATION
     Dosage: 80 MILLIGRAM, DAILY
     Route: 050
  10. ROSUVASTATINE TABLET FO 10MG (ALS CA-ZOUT)ROSUVASTATINE TABLET FO 1... [Concomitant]
     Indication: PRODUCT USED FOR UNKNOWN INDICATION
     Dosage: 10 MILLIGRAM, DAILY
     Route: 050

REACTIONS (2)
  - Hypocalcaemia [Recovering/Resolving]
  - Hypomagnesaemia [Recovering/Resolving]

NARRATIVE: CASE EVENT DATE: 20180719
